FAERS Safety Report 10174008 (Version 1)
Quarter: 2014Q2

REPORT INFORMATION
  Report Type: Report from Study
  Country: US (occurrence: US)
  Receive Date: 20140515
  Receipt Date: 20140515
  Transmission Date: 20141212
  Serious: Yes (Hospitalization)
  Sender: FDA-Public Use
  Company Number: US-IPSEN BIOPHARMACEUTICALS, INC.-2014-2364

PATIENT
  Age: 63 Year
  Sex: Female

DRUGS (2)
  1. SOMATULINE DEPOT INJECTION (90MG) [Suspect]
     Indication: ACROMEGALY
     Dosage: 60 MG
     Route: 058
  2. LISINOPRIL [Concomitant]
     Indication: CARDIAC DISORDER
     Dosage: NOT REPORTED
     Route: 065

REACTIONS (4)
  - Malaise [Recovering/Resolving]
  - Dyspnoea [Recovering/Resolving]
  - Pulmonary oedema [Unknown]
  - Headache [Not Recovered/Not Resolved]
